FAERS Safety Report 8095039 (Version 2)
Quarter: 2012Q4

REPORT INFORMATION
  Report Type: Report from Study
  Country: US (occurrence: US)
  Receive Date: 20110817
  Receipt Date: 20120920
  Transmission Date: 20130627
  Serious: Yes (Other)
  Sender: FDA-Public Use
  Company Number: US-GILEAD-2011-0042719

PATIENT
  Age: 30 Year
  Sex: Female

DRUGS (6)
  1. TRUVADA [Suspect]
     Indication: HIV INFECTION
     Route: 048
     Dates: start: 20110621
  2. REYATAZ [Concomitant]
     Indication: HIV INFECTION
     Route: 048
     Dates: start: 20110621
  3. NORVIR [Concomitant]
     Indication: HIV INFECTION
     Route: 048
     Dates: start: 20110621
  4. ETRAVIRINE [Concomitant]
  5. ABACAVIR [Concomitant]
  6. EPIVIR [Concomitant]

REACTIONS (1)
  - Abortion spontaneous [Recovered/Resolved]
